FAERS Safety Report 19770917 (Version 1)
Quarter: 2021Q3

REPORT INFORMATION
  Report Type: Spontaneous
  Country: FR (occurrence: FR)
  Receive Date: 20210901
  Receipt Date: 20210901
  Transmission Date: 20211014
  Serious: Yes (Other)
  Sender: FDA-Public Use
  Company Number: FR-CELLTRION INC.-2021FR011564

PATIENT

DRUGS (3)
  1. RITUXIMAB. [Suspect]
     Active Substance: RITUXIMAB
     Indication: IMMUNOSUPPRESSION
     Dosage: UNK
     Route: 041
  2. ENVARSUS XR [Suspect]
     Active Substance: TACROLIMUS
     Indication: IMMUNOSUPPRESSION
     Dosage: LOW DOSE
     Route: 065
  3. MYCOPHENOLIC ACID. [Suspect]
     Active Substance: MYCOPHENOLIC ACID
     Indication: IMMUNOSUPPRESSION
     Dosage: UNK
     Route: 065

REACTIONS (9)
  - Pyelonephritis [Unknown]
  - Disease recurrence [Recovered/Resolved]
  - Toxicity to various agents [Unknown]
  - Condition aggravated [Recovered/Resolved]
  - Polyomavirus viraemia [Recovered/Resolved]
  - Focal segmental glomerulosclerosis [Recovered/Resolved]
  - Off label use [Unknown]
  - Pneumonia [Unknown]
  - BK virus infection [Recovered/Resolved]
